FAERS Safety Report 7068494-3 (Version None)
Quarter: 2010Q4

REPORT INFORMATION
  Report Type: 
  Country: None (occurrence: None)
  Receive Date: 20101028
  Receipt Date: 20101025
  Transmission Date: 20110411
  Serious: Yes (Hospitalization)
  Sender: FDA-Public Use
  Company Number: US-JNJFOC-20100607899

PATIENT
  Sex: Male
  Weight: 16.33 kg

DRUGS (5)
  1. CONCENTRATED TYLENOL INFANT DROPS [Suspect]
     Route: 048
  2. CONCENTRATED TYLENOL INFANT DROPS [Suspect]
     Indication: PYREXIA
     Dosage: 160 MG EVERY 4-6 HOURS
     Route: 048
  3. CONCENTRATED MOTRIN INFANTS DROPS [Suspect]
     Indication: BACTERIAL INFECTION
  4. CONCENTRATED MOTRIN INFANTS DROPS [Suspect]
     Indication: PYREXIA
  5. AUGMENTIN '125' [Suspect]
     Indication: INFECTION

REACTIONS (8)
  - DECREASED APPETITE [None]
  - DRUG INEFFECTIVE [None]
  - PHARYNGOTONSILLITIS [None]
  - PNEUMONIA [None]
  - PRODUCT QUALITY ISSUE [None]
  - PYREXIA [None]
  - VIRAL INFECTION [None]
  - WEIGHT DECREASED [None]
